FAERS Safety Report 15662439 (Version 1)
Quarter: 2018Q4

REPORT INFORMATION
  Report Type: Spontaneous
  Country: FR (occurrence: FR)
  Receive Date: 20181127
  Receipt Date: 20181127
  Transmission Date: 20190205
  Serious: Yes (Hospitalization)
  Sender: FDA-Public Use
  Company Number: FR-SAKK-2018SA161218AA

PATIENT
  Age: 48 Year
  Sex: Male
  Weight: 105 kg

DRUGS (2)
  1. DUPIXENT [Suspect]
     Active Substance: DUPILUMAB
     Indication: DERMATITIS ATOPIC
     Dosage: 300 MG
     Route: 058
     Dates: start: 20180425
  2. TENORDATE [Concomitant]
     Active Substance: ATENOLOL\NIFEDIPINE

REACTIONS (3)
  - Pruritus [Recovering/Resolving]
  - Paradoxical drug reaction [Recovering/Resolving]
  - Eczema [Recovering/Resolving]

NARRATIVE: CASE EVENT DATE: 20180427
